FAERS Safety Report 6129793-2 (Version None)
Quarter: 2009Q1

REPORT INFORMATION
  Report Type: 
  Country: None (occurrence: None)
  Receive Date: 20090324
  Receipt Date: 20090311
  Transmission Date: 20090719
  Serious: Yes (Hospitalization)
  Sender: FDA-Public Use
  Company Number: US-SANOFI-SYNTHELABO-F01200700148

PATIENT
  Sex: Female
  Weight: 60 kg

DRUGS (9)
  1. DOCETAXEL [Suspect]
     Route: 041
     Dates: start: 20061019, end: 20061019
  2. MULTI-VITAMIN [Concomitant]
     Route: 048
     Dates: start: 20000101
  3. KEFLEX [Concomitant]
     Indication: URINARY TRACT INFECTION
     Route: 048
     Dates: start: 20061016
  4. AMBIEN [Concomitant]
     Indication: INSOMNIA
     Route: 048
     Dates: start: 20060906
  5. DECADRON [Concomitant]
     Dosage: 8 MG 12 HOURS BEFORE AND 12 HOURS AFTER TREATMENT
     Route: 048
     Dates: start: 20060705
  6. SPIRIVA [Concomitant]
     Indication: BRONCHITIS CHRONIC
     Dosage: 2-4 PUFFS TWICE A DAY
     Route: 055
     Dates: start: 20060501
  7. BEVACIZUMAB [Suspect]
     Route: 041
     Dates: start: 20061019, end: 20061019
  8. AVALIDE [Concomitant]
     Indication: HYPERTENSION
     Route: 048
     Dates: start: 20060329
  9. OXALIPLATIN [Suspect]
     Route: 041
     Dates: start: 20061019, end: 20061019

REACTIONS (1)
  - CYSTITIS HAEMORRHAGIC [None]
